FAERS Safety Report 8384010-8 (Version None)
Quarter: 2012Q2

REPORT INFORMATION
  Report Type: 
  Country: None (occurrence: None)
  Receive Date: 20120524
  Receipt Date: 20120511
  Transmission Date: 20120825
  Serious: Yes (Other)
  Sender: FDA-Public Use
  Company Number: CO-AMGEN-COLCT2012012796

PATIENT
  Age: 46 Year
  Sex: Female

DRUGS (4)
  1. CALCIUM [Concomitant]
     Dosage: UNK
  2. PREDNISOLONE [Concomitant]
     Indication: RHEUMATOID ARTHRITIS
     Dosage: 5 MG, 1X/DAY
     Dates: start: 20110804
  3. METHOTREXATE [Concomitant]
     Indication: RHEUMATOID ARTHRITIS
     Dosage: 5MG; 4 CAPSULES EVERY 8 DAYS
     Dates: start: 20110804
  4. ETANERCEPT [Suspect]
     Indication: RHEUMATOID ARTHRITIS
     Dosage: 50 MG, QWK
     Route: 058
     Dates: start: 20110804

REACTIONS (6)
  - MOUTH HAEMORRHAGE [None]
  - WEIGHT DECREASED [None]
  - COUGH [None]
  - SPUTUM DISCOLOURED [None]
  - OEDEMA PERIPHERAL [None]
  - MUSCLE SPASMS [None]
